FAERS Safety Report 11314990 (Version 1)
Quarter: 2015Q3

REPORT INFORMATION
  Report Type: Spontaneous
  Country: FR (occurrence: FR)
  Receive Date: 20150727
  Receipt Date: 20150727
  Transmission Date: 20151125
  Serious: Yes (Life-Threatening, Hospitalization)
  Sender: FDA-Public Use
  Company Number: FR-BAXTER-2015BAX039467

PATIENT
  Age: 68 Year
  Sex: Female
  Weight: 54 kg

DRUGS (35)
  1. VINCRISTINE TEVA [Suspect]
     Active Substance: VINCRISTINE
     Dosage: IN ONE COURSE
     Route: 042
     Dates: start: 20150202, end: 20150223
  2. ENDOXAN 1000 MG, POUDRE POUR SOLUTION INJECTABLE [Suspect]
     Active Substance: CYCLOPHOSPHAMIDE
     Dosage: IN ONE COURSE
     Route: 042
     Dates: start: 20141020, end: 20150223
  3. MABTHERA [Suspect]
     Active Substance: RITUXIMAB
     Dosage: IN ONE COURSE
     Route: 042
     Dates: start: 20150112, end: 20150223
  4. VINCRISTINE TEVA [Suspect]
     Active Substance: VINCRISTINE
     Dosage: IN ONE COURSE
     Route: 042
     Dates: start: 20150112, end: 20150223
  5. ADRIBLASTINE [Suspect]
     Active Substance: DOXORUBICIN
     Dosage: IN ONE COURSE
     Route: 042
     Dates: start: 20150223, end: 20150223
  6. ENDOXAN 1000 MG, POUDRE POUR SOLUTION INJECTABLE [Suspect]
     Active Substance: CYCLOPHOSPHAMIDE
     Dosage: IN ONE COURSE
     Route: 042
     Dates: start: 20150223, end: 20150223
  7. MABTHERA [Suspect]
     Active Substance: RITUXIMAB
     Dosage: IN ONE COURSE
     Route: 042
     Dates: start: 20141020, end: 20150223
  8. ADRIBLASTINE [Suspect]
     Active Substance: DOXORUBICIN
     Dosage: IN ONE COURSE
     Route: 042
     Dates: start: 20141222, end: 20150223
  9. GRANOCYTE [Concomitant]
     Active Substance: LENOGRASTIM
     Indication: PRODUCT USED FOR UNKNOWN INDICATION
     Route: 065
     Dates: start: 20140929
  10. ENDOXAN 1000 MG, POUDRE POUR SOLUTION INJECTABLE [Suspect]
     Active Substance: CYCLOPHOSPHAMIDE
     Dosage: IN ONE COURSE
     Route: 042
     Dates: start: 20141222, end: 20150223
  11. ENDOXAN 1000 MG, POUDRE POUR SOLUTION INJECTABLE [Suspect]
     Active Substance: CYCLOPHOSPHAMIDE
     Dosage: IN ONE COURSE
     Route: 042
     Dates: start: 20150112, end: 20150223
  12. MABTHERA [Suspect]
     Active Substance: RITUXIMAB
     Dosage: IN ONE COURSE
     Route: 042
     Dates: start: 20141222, end: 20150223
  13. MABTHERA [Suspect]
     Active Substance: RITUXIMAB
     Dosage: IN ONE COURSE
     Route: 042
     Dates: start: 20150202, end: 20150223
  14. VINCRISTINE TEVA [Suspect]
     Active Substance: VINCRISTINE
     Dosage: IN ONE COURSE
     Route: 042
     Dates: start: 20141201, end: 20150223
  15. VINCRISTINE TEVA [Suspect]
     Active Substance: VINCRISTINE
     Dosage: IN ONE COURSE
     Route: 042
     Dates: start: 20141222, end: 20150223
  16. VINCRISTINE TEVA [Suspect]
     Active Substance: VINCRISTINE
     Dosage: IN ONE COURSE
     Route: 042
     Dates: start: 20150223, end: 20150223
  17. ADRIBLASTINE [Suspect]
     Active Substance: DOXORUBICIN
     Dosage: IN ONE COURSE
     Route: 042
     Dates: start: 20141020, end: 20150223
  18. ADRIBLASTINE [Suspect]
     Active Substance: DOXORUBICIN
     Dosage: IN ONE COURSE
     Route: 042
     Dates: start: 20150112, end: 20150223
  19. BACTRIM [Suspect]
     Active Substance: SULFAMETHOXAZOLE\TRIMETHOPRIM
     Indication: ANTIBIOTIC PROPHYLAXIS
     Route: 048
     Dates: start: 201410, end: 20150520
  20. ENDOXAN 1000 MG, POUDRE POUR SOLUTION INJECTABLE [Suspect]
     Active Substance: CYCLOPHOSPHAMIDE
     Dosage: IN ONE COURSE
     Route: 042
     Dates: start: 20141110, end: 20150223
  21. MABTHERA [Suspect]
     Active Substance: RITUXIMAB
     Dosage: IN ONE COURSE
     Route: 042
     Dates: start: 20150223, end: 20150223
  22. VINCRISTINE TEVA [Suspect]
     Active Substance: VINCRISTINE
     Indication: B-CELL LYMPHOMA
     Dosage: IN ONE COURSE
     Route: 042
     Dates: start: 20140929, end: 20150223
  23. VINCRISTINE TEVA [Suspect]
     Active Substance: VINCRISTINE
     Dosage: IN ONE COURSE
     Route: 042
     Dates: start: 20141020, end: 20150223
  24. ADRIBLASTINE [Suspect]
     Active Substance: DOXORUBICIN
     Dosage: IN ONE COURSE
     Route: 042
     Dates: start: 20141110, end: 20150223
  25. LEDERFOLINE [Concomitant]
     Active Substance: LEUCOVORIN CALCIUM
     Indication: PRODUCT USED FOR UNKNOWN INDICATION
     Route: 065
  26. ENDOXAN 1000 MG, POUDRE POUR SOLUTION INJECTABLE [Suspect]
     Active Substance: CYCLOPHOSPHAMIDE
     Dosage: IN ONE COURSE
     Route: 042
     Dates: start: 20141201, end: 20150223
  27. ENDOXAN 1000 MG, POUDRE POUR SOLUTION INJECTABLE [Suspect]
     Active Substance: CYCLOPHOSPHAMIDE
     Dosage: IN ONE COURSE
     Route: 042
     Dates: start: 20150202, end: 20150223
  28. MABTHERA [Suspect]
     Active Substance: RITUXIMAB
     Dosage: IN ONE COURSE
     Route: 042
     Dates: start: 20141201, end: 20150223
  29. VINCRISTINE TEVA [Suspect]
     Active Substance: VINCRISTINE
     Dosage: IN ONE COURSE
     Route: 042
     Dates: start: 20141110, end: 20150223
  30. ADRIBLASTINE [Suspect]
     Active Substance: DOXORUBICIN
     Indication: B-CELL LYMPHOMA
     Dosage: IN ONE COURSE
     Route: 042
     Dates: start: 20140929, end: 20150223
  31. MABTHERA [Suspect]
     Active Substance: RITUXIMAB
     Indication: B-CELL LYMPHOMA
     Dosage: IN ONE COURSE
     Route: 042
     Dates: start: 20140929, end: 20150223
  32. ADRIBLASTINE [Suspect]
     Active Substance: DOXORUBICIN
     Dosage: IN ONE COURSE
     Route: 042
     Dates: start: 20141201, end: 20150223
  33. ADRIBLASTINE [Suspect]
     Active Substance: DOXORUBICIN
     Dosage: IN ONE COURSE
     Route: 042
     Dates: start: 20150202, end: 20150223
  34. ENDOXAN 1000 MG, POUDRE POUR SOLUTION INJECTABLE [Suspect]
     Active Substance: CYCLOPHOSPHAMIDE
     Indication: B-CELL LYMPHOMA
     Dosage: IN ONE COURSE
     Route: 042
     Dates: start: 20140929, end: 20150223
  35. MABTHERA [Suspect]
     Active Substance: RITUXIMAB
     Dosage: IN ONE COURSE
     Route: 042
     Dates: start: 20141110, end: 20150223

REACTIONS (2)
  - Leukopenia [Recovering/Resolving]
  - Agranulocytosis [Recovering/Resolving]

NARRATIVE: CASE EVENT DATE: 20150511
